FAERS Safety Report 8051242-8 (Version None)
Quarter: 2012Q1

REPORT INFORMATION
  Report Type: 
  Country: None (occurrence: None)
  Receive Date: 20120117
  Receipt Date: 20120105
  Transmission Date: 20120608
  Serious: Yes (Hospitalization, Other)
  Sender: FDA-Public Use
  Company Number: US-ASTRAZENECA-2012SE01216

PATIENT
  Sex: Female

DRUGS (6)
  1. LIDOCAINE [Suspect]
     Route: 065
  2. TOPROL-XL [Suspect]
     Indication: HYPERTENSION
     Route: 048
  3. EPINEPHRINE [Suspect]
     Route: 065
  4. TOPROL-XL [Suspect]
     Route: 048
  5. TOPROL-XL [Suspect]
     Route: 048
  6. TOPROL-XL [Suspect]
     Indication: CARDIAC DISORDER
     Route: 048

REACTIONS (5)
  - CARDIOVASCULAR DISORDER [None]
  - BRADYCARDIA [None]
  - SKIN CANCER [None]
  - ARRHYTHMIA [None]
  - OFF LABEL USE [None]
